FAERS Safety Report 18460986 (Version 2)
Quarter: 2020Q4

REPORT INFORMATION
  Report Type: Spontaneous
  Country: CA (occurrence: CA)
  Receive Date: 20201104
  Receipt Date: 20201104
  Transmission Date: 20210114
  Serious: Yes (Other)
  Sender: FDA-Public Use
  Company Number: CA-ORION CORPORATION ORION PHARMA-20_00011571

PATIENT
  Age: 51 Year
  Sex: Female

DRUGS (3)
  1. SEPTRA [Concomitant]
     Active Substance: SULFAMETHOXAZOLE\TRIMETHOPRIM
     Route: 065
  2. PREDNISONE. [Concomitant]
     Active Substance: PREDNISONE
     Route: 065
  3. METHOTREXATE (TRADE NAME UNKNOWN) [Suspect]
     Active Substance: METHOTREXATE
     Indication: GRANULOMATOSIS WITH POLYANGIITIS
     Route: 065

REACTIONS (7)
  - Product use in unapproved indication [Unknown]
  - Laryngeal stenosis [Recovering/Resolving]
  - Haematuria [Recovered/Resolved]
  - Renal impairment [Recovered/Resolved]
  - Haemorrhage [Unknown]
  - Nasal disorder [Unknown]
  - Dyspnoea [Recovering/Resolving]
